FAERS Safety Report 23982647 (Version 2)
Quarter: 2024Q2

REPORT INFORMATION
  Report Type: Spontaneous
  Country: CN (occurrence: CN)
  Receive Date: 20240617
  Receipt Date: 20240624
  Transmission Date: 20240716
  Serious: Yes (Hospitalization)
  Sender: FDA-Public Use
  Company Number: CN-NOVOPROD-1235186

PATIENT
  Age: 70 Year
  Sex: Male
  Weight: 72.5 kg

DRUGS (3)
  1. INSULIN ASPART [Suspect]
     Active Substance: INSULIN ASPART
     Indication: Type 2 diabetes mellitus
     Dosage: UNK , TID
  2. INSULIN ASPART [Suspect]
     Active Substance: INSULIN ASPART
     Indication: Type 2 diabetes mellitus
     Dosage: UNK , TID
     Dates: start: 2015
  3. INSULINA [INSULIN NOS] [Concomitant]
     Indication: Type 2 diabetes mellitus
     Dosage: UNK

REACTIONS (3)
  - Interstitial lung disease [Unknown]
  - Myocardial infarction [Unknown]
  - Renal impairment [Unknown]
